FAERS Safety Report 9222783 (Version 3)
Quarter: 2013Q3

REPORT INFORMATION
  Report Type: Spontaneous
  Country: US (occurrence: US)
  Receive Date: 20130410
  Receipt Date: 20130708
  Transmission Date: 20140515
  Serious: Yes (Other)
  Sender: FDA-Public Use
  Company Number: US-PFIZER INC-2013109035

PATIENT
  Age: 56 Year
  Sex: Male

DRUGS (2)
  1. BENEFIX [Suspect]
     Indication: FACTOR IX DEFICIENCY
     Dosage: UNK
     Dates: start: 199703
  2. BENEFIX [Suspect]
     Indication: HAEMOPHILIA

REACTIONS (3)
  - Haemorrhage [Recovering/Resolving]
  - Arthropathy [Unknown]
  - Fall [Recovering/Resolving]
